FAERS Safety Report 7756380-2 (Version None)
Quarter: 2011Q3

REPORT INFORMATION
  Report Type: 
  Country: None (occurrence: None)
  Receive Date: 20110916
  Receipt Date: 20110907
  Transmission Date: 20111222
  Serious: Yes (Other)
  Sender: FDA-Public Use
  Company Number: CA-ROCHE-801740

PATIENT
  Sex: Male
  Weight: 106.1 kg

DRUGS (5)
  1. DECADRON [Concomitant]
  2. KEPPRA [Concomitant]
  3. TEMODAL [Concomitant]
  4. BEVACIZUMAB [Suspect]
     Indication: OLIGODENDROGLIOMA
     Dosage: FREQUENCY: 2 WEEKS.
     Route: 042
     Dates: start: 20110603
  5. INNOHEP [Concomitant]

REACTIONS (1)
  - NEOPLASM [None]
